FAERS Safety Report 8760055 (Version 1)
Quarter: 2012Q4

REPORT INFORMATION
  Report Type: 
  Country: GB (occurrence: GB)
  Receive Date: 20120829
  Receipt Date: 20120829
  Transmission Date: 20130627
  Serious: Yes (Disabling, Other)
  Sender: FDA-Public Use
  Company Number: GB-ROCHE-1104714

PATIENT
  Age: 28 Year
  Sex: Male

DRUGS (1)
  1. MEFLOQUINE [Suspect]
     Indication: MALARIA PROPHYLAXIS
     Route: 048
     Dates: start: 201012, end: 201103

REACTIONS (2)
  - Jealous delusion [Recovered/Resolved]
  - Psychotic disorder [Recovered/Resolved]
